FAERS Safety Report 12491100 (Version 1)
Quarter: 2016Q2

REPORT INFORMATION
  Report Type: Other
  Country: DE (occurrence: DE)
  Receive Date: 20160623
  Receipt Date: 20160623
  Transmission Date: 20160815
  Serious: Yes (Hospitalization, Congenital Anomaly, Other)
  Sender: FDA-Public Use
  Company Number: DE-MACLEODS PHARMACEUTICALS US LTD-MAC2016002832

PATIENT

DRUGS (3)
  1. FOLS?URE [Concomitant]
     Indication: PROPHYLAXIS OF NEURAL TUBE DEFECT
     Dosage: UNK (0. - 30.6. GESTATIONAL WEEK)
     Route: 064
     Dates: start: 20141022, end: 20150526
  2. ESCITALOPRAM [Suspect]
     Active Substance: ESCITALOPRAM OXALATE
     Indication: POSTPARTUM DEPRESSION
     Dosage: 10 MG, QD (FROM 0-6 AND 23-30+6 WEEEK)
     Route: 064
     Dates: start: 20141022, end: 20150526
  3. L-THYROXINE SODIUM [Concomitant]
     Active Substance: LEVOTHYROXINE SODIUM
     Indication: HYPOTHYROIDISM
     Dosage: 50 ?G, QD (30.6-30.6 GESTATIONAL WEEK)
     Route: 064
     Dates: start: 20150526, end: 20150526

REACTIONS (3)
  - Premature baby [Recovering/Resolving]
  - Foetal exposure during pregnancy [None]
  - Cleft lip and palate [Not Recovered/Not Resolved]

NARRATIVE: CASE EVENT DATE: 20150707
